FAERS Safety Report 4954953-3 (Version None)
Quarter: 2006Q1

REPORT INFORMATION
  Report Type: 
  Country: None (occurrence: None)
  Receive Date: 20060322
  Receipt Date: 20060313
  Transmission Date: 20060701
  Serious: Yes (Hospitalization, Other)
  Sender: FDA-Public Use
  Company Number: 2006027559

PATIENT
  Age: 64 Year
  Sex: Male
  Weight: 77.1115 kg

DRUGS (1)
  1. EMETROL (GLUCOSE, FRUCTOSE, PHOSPHORIC ACID) [Suspect]
     Indication: POST PROCEDURAL NAUSEA
     Dosage: 2 TBSP 2-4 TIMES ^AS DIRECTED^, ORAL
     Route: 048
     Dates: start: 20060215, end: 20060215

REACTIONS (2)
  - DRUG INEFFECTIVE [None]
  - POST PROCEDURAL COMPLICATION [None]
